FAERS Safety Report 25324416 (Version 1)
Quarter: 2025Q2

REPORT INFORMATION
  Report Type: Spontaneous
  Country: US (occurrence: None)
  Receive Date: 20250515
  Receipt Date: 20250515
  Transmission Date: 20250717
  Serious: Yes (Other)
  Sender: FDA-CTU
  Company Number: None

PATIENT
  Age: 43 Year
  Sex: Female
  Weight: 84.6 kg

DRUGS (1)
  1. RYDAPT [Suspect]
     Active Substance: MIDOSTAURIN
     Indication: Mastocytoma
     Dosage: 25 MG TWICE A DAY ORAL
     Route: 048
     Dates: start: 20250411

REACTIONS (5)
  - Diarrhoea [None]
  - Nausea [None]
  - Vomiting [None]
  - Abdominal pain upper [None]
  - Weight decreased [None]

NARRATIVE: CASE EVENT DATE: 20250514
